FAERS Safety Report 14682847 (Version 1)
Quarter: 2018Q1

REPORT INFORMATION
  Report Type: Spontaneous
  Country: US (occurrence: US)
  Receive Date: 20180327
  Receipt Date: 20180327
  Transmission Date: 20180509
  Serious: Yes (Other)
  Sender: FDA-Public Use
  Company Number: US-ROCHE-2091612

PATIENT
  Sex: Male

DRUGS (5)
  1. ENBREL [Suspect]
     Active Substance: ETANERCEPT
     Indication: PRODUCT USED FOR UNKNOWN INDICATION
     Dosage: ENBREL WAS INEFFECTIVE AFTER 10 MONTHS
     Route: 065
  2. LEFLUNOMIDE. [Concomitant]
     Active Substance: LEFLUNOMIDE
  3. HUMIRA [Concomitant]
     Active Substance: ADALIMUMAB
  4. PREDNISONE. [Concomitant]
     Active Substance: PREDNISONE
  5. VALIUM [Suspect]
     Active Substance: DIAZEPAM
     Indication: PRODUCT USED FOR UNKNOWN INDICATION
     Route: 065

REACTIONS (4)
  - Adrenal insufficiency [Unknown]
  - Drug hypersensitivity [Unknown]
  - Liver function test increased [Unknown]
  - Drug ineffective [Unknown]
